FAERS Safety Report 5815199-X (Version None)
Quarter: 2008Q3

REPORT INFORMATION
  Report Type: 
  Country: None (occurrence: None)
  Receive Date: 20080718
  Receipt Date: 20080707
  Transmission Date: 20090109
  Serious: Yes (Hospitalization, Other)
  Sender: FDA-Public Use
  Company Number: DE-ROCHE-531586

PATIENT
  Age: 53 Year
  Sex: Female
  Weight: 61 kg

DRUGS (13)
  1. CAPECITABINE [Suspect]
     Dosage: FREQUENCY: D1-14, Q21
     Route: 048
     Dates: start: 20061130
  2. CAPECITABINE [Suspect]
     Dosage: DOSAGE REGIMEN NOT PER PROTOCOL. (2000 MG BID)
     Route: 048
     Dates: start: 20070117, end: 20070130
  3. CAPECITABINE [Suspect]
     Dosage: DOSAGE REGIMEN NOT PER PROTOCOL (1500 MG BID)
     Route: 048
     Dates: start: 20071127, end: 20071210
  4. CAPECITABINE [Suspect]
     Dosage: CYCLE 4.
     Route: 048
     Dates: start: 20070207, end: 20070221
  5. METOCLOPRAMIDE HYDROCHLORIDE [Concomitant]
     Indication: NAUSEA
     Route: 048
     Dates: start: 20061130
  6. NEXIUM [Concomitant]
     Indication: NAUSEA
     Dosage: FREQUENCY REPORTED: Q,7D
     Route: 048
     Dates: start: 20061130
  7. ARCOXIA [Concomitant]
     Indication: BONE PAIN
     Dosage: DRUG REPORTED: ARCOXIA 90. FREQUENCY: AS NEEDED.
     Route: 048
     Dates: start: 20061121
  8. FORTECORTIN [Concomitant]
     Indication: NAUSEA
     Dosage: FREQUENCY: AS NEEDED
     Route: 048
     Dates: start: 20061221
  9. ZOMETA [Concomitant]
     Indication: PROPHYLAXIS
     Route: 042
     Dates: start: 20061130
  10. UREADIN [Concomitant]
     Route: 003
     Dates: start: 20070130
  11. ROGAINE [Concomitant]
     Route: 003
     Dates: start: 20070802
  12. 1 CONCOMITANT DRUG [Concomitant]
     Dosage: DRUG REPORTED: SILICIA-ROICIUM COMB.
     Route: 048
     Dates: start: 20070807
  13. ZOFRAN [Concomitant]
     Indication: NAUSEA
     Dosage: DRUG REPORTED: ZORFAN SUBLINGUAL
     Route: 048
     Dates: start: 20071129

REACTIONS (4)
  - ANOREXIA [None]
  - GENERAL PHYSICAL HEALTH DETERIORATION [None]
  - PNEUMONITIS [None]
  - PYREXIA [None]
